FAERS Safety Report 23290794 (Version 1)
Quarter: 2023Q4

REPORT INFORMATION
  Report Type: Spontaneous
  Country: US (occurrence: US)
  Receive Date: 20231213
  Receipt Date: 20231213
  Transmission Date: 20240110
  Serious: Yes (Hospitalization, Other)
  Sender: FDA-Public Use
  Company Number: US-GLAXOSMITHKLINE-US2023171063

PATIENT

DRUGS (1)
  1. MEPRON [Suspect]
     Active Substance: ATOVAQUONE
     Indication: Product used for unknown indication
     Dosage: 5 ML, QD, 750MG/5ML SUSPENSION TAKE ONCE

REACTIONS (2)
  - Intestinal perforation [Recovering/Resolving]
  - Cholecystectomy [Recovering/Resolving]

NARRATIVE: CASE EVENT DATE: 20221224
